FAERS Safety Report 11426150 (Version 1)
Quarter: 2015Q3

REPORT INFORMATION
  Report Type: Spontaneous
  Country: US (occurrence: US)
  Receive Date: 20150821
  Receipt Date: 20150821
  Transmission Date: 20151125
  Serious: No
  Sender: FDA-Public Use
  Company Number: US-ELI_LILLY_AND_COMPANY-US201004000233

PATIENT
  Age: 41 Year
  Sex: Female

DRUGS (4)
  1. HUMULIN N [Suspect]
     Active Substance: INSULIN HUMAN
     Indication: DIABETES MELLITUS
     Dosage: 24 U, EACH MORNING
     Dates: start: 2000
  2. HUMULIN N [Suspect]
     Active Substance: INSULIN HUMAN
     Dosage: 24 U, EACH MORNING
     Dates: start: 2000
  3. HUMULIN N [Suspect]
     Active Substance: INSULIN HUMAN
     Dosage: 15 U, EACH EVENING
     Dates: start: 2000
  4. HUMULIN N [Suspect]
     Active Substance: INSULIN HUMAN
     Dosage: 15 U, EACH EVENING
     Dates: start: 2000

REACTIONS (12)
  - Expired product administered [Unknown]
  - Feeling abnormal [Unknown]
  - Arthralgia [Unknown]
  - Drug ineffective [Unknown]
  - Dizziness [Unknown]
  - Nausea [Unknown]
  - Drug dispensing error [Unknown]
  - Abdominal pain upper [Unknown]
  - Dizziness [Unknown]
  - Feeling abnormal [Unknown]
  - Nausea [Unknown]
  - Incorrect product storage [Unknown]

NARRATIVE: CASE EVENT DATE: 2009
